FAERS Safety Report 24948578 (Version 3)
Quarter: 2025Q1

REPORT INFORMATION
  Report Type: Spontaneous
  Country: US (occurrence: US)
  Receive Date: 20250210
  Receipt Date: 20250303
  Transmission Date: 20250409
  Serious: Yes (Other)
  Sender: BRISTOL-MYERS SQUIBB COMPANY
  Company Number: US-BRISTOL-MYERS SQUIBB COMPANY-2025-017601

PATIENT
  Age: 84 Year
  Sex: Male

DRUGS (24)
  1. POMALYST [Suspect]
     Active Substance: POMALIDOMIDE
     Indication: Bone cancer
     Dosage: TAKE 1 CAPSULE BY MOUTH EVERY DAY FOR 21 DAYS
     Route: 048
  2. POMALYST [Suspect]
     Active Substance: POMALIDOMIDE
     Indication: Plasma cell myeloma
     Dosage: ORAL 1 TIME DAILY FOR 1 OF 1 CYCLE
     Route: 048
     Dates: start: 20250131, end: 20250221
  3. POMALYST [Suspect]
     Active Substance: POMALIDOMIDE
     Indication: Lung neoplasm malignant
     Dosage: ORAL 1 TIME DAILY FOR 1 OF 1 CYCLE
     Dates: start: 20250109, end: 20250209
  4. POMALYST [Suspect]
     Active Substance: POMALIDOMIDE
     Dosage: ORAL 1 TIME DAILY FOR 1 OF 1 CYCLE
     Dates: start: 20250217
  5. POMALYST [Suspect]
     Active Substance: POMALIDOMIDE
     Dates: start: 20241223
  6. DEXAMETHASONE [Concomitant]
     Active Substance: DEXAMETHASONE
     Indication: Plasma cell myeloma
     Dates: start: 20241223
  7. ACYCLOVIR [Concomitant]
     Active Substance: ACYCLOVIR
     Indication: Prophylaxis
     Dosage: BID
     Dates: start: 20241127
  8. ASPIRIN [Concomitant]
     Active Substance: ASPIRIN
     Indication: Prophylaxis
     Dosage: DAILY
     Dates: start: 20241127
  9. CARVEDILOL [Concomitant]
     Active Substance: CARVEDILOL
     Indication: Hypertension
     Dosage: BID
     Dates: start: 20180525
  10. VITAMIN D3 [Concomitant]
     Active Substance: CHOLECALCIFEROL
     Indication: Product used for unknown indication
     Dosage: 2000 UNIT (SUPPLEMENT)
     Dates: start: 2018
  11. VITAMINS NOS [Concomitant]
     Active Substance: VITAMINS
     Indication: Product used for unknown indication
     Dosage: 1 TABLET SUPPLEMENT
     Dates: start: 20241127
  12. ONDANSETRON [Concomitant]
     Active Substance: ONDANSETRON
     Indication: Nausea
     Dosage: Q8H PRN
     Dates: start: 20241127
  13. PANTOPRAZOLE [Concomitant]
     Active Substance: PANTOPRAZOLE
     Indication: Gastrooesophageal reflux disease
     Dates: start: 20180419
  14. PROCHLORPERAZINE [Concomitant]
     Active Substance: PROCHLORPERAZINE
     Indication: Nausea
     Dates: start: 20241127
  15. SIMVASTATIN [Concomitant]
     Active Substance: SIMVASTATIN
     Indication: Blood cholesterol increased
     Dates: start: 20150105
  16. BACTRIM [Concomitant]
     Active Substance: SULFAMETHOXAZOLE\TRIMETHOPRIM
     Indication: Prophylaxis
     Dosage: 400-80 MG TABLET (DAILY FOR 90 DAY)
     Dates: start: 20250119, end: 20250119
  17. VALACYCLOVIR [Concomitant]
     Active Substance: VALACYCLOVIR HYDROCHLORIDE
     Indication: Prophylaxis
     Dosage: DAILY
     Dates: start: 20241127
  18. DARZALEX FASPRO [Concomitant]
     Active Substance: DARATUMUMAB\HYALURONIDASE-FIHJ
     Indication: Product used for unknown indication
     Dates: start: 20250203
  19. DARZALEX FASPRO [Concomitant]
     Active Substance: DARATUMUMAB\HYALURONIDASE-FIHJ
     Route: 058
     Dates: start: 20241223
  20. DARZALEX FASPRO [Concomitant]
     Active Substance: DARATUMUMAB\HYALURONIDASE-FIHJ
     Route: 058
     Dates: start: 20250127
  21. DARZALEX FASPRO [Concomitant]
     Active Substance: DARATUMUMAB\HYALURONIDASE-FIHJ
     Dates: start: 20250210
  22. XGEVA [Concomitant]
     Active Substance: DENOSUMAB
     Indication: Product used for unknown indication
     Dates: start: 20240520
  23. XGEVA [Concomitant]
     Active Substance: DENOSUMAB
     Dates: start: 20240812
  24. XGEVA [Concomitant]
     Active Substance: DENOSUMAB
     Dates: start: 20241104

REACTIONS (2)
  - Pneumonia [Recovered/Resolved]
  - Genital rash [Recovering/Resolving]

NARRATIVE: CASE EVENT DATE: 20241231
